FAERS Safety Report 6717600-6 (Version None)
Quarter: 2010Q2

REPORT INFORMATION
  Report Type: 
  Country: None (occurrence: None)
  Receive Date: 20100510
  Receipt Date: 20100430
  Transmission Date: 20101027
  Serious: Yes (Hospitalization)
  Sender: FDA-Public Use
  Company Number: FR-SANOFI-AVENTIS-2010SA025236

PATIENT
  Age: 61 Year
  Sex: Male

DRUGS (2)
  1. PLAVIX [Suspect]
     Indication: AORTIC THROMBOSIS
     Route: 048
     Dates: start: 20100104
  2. KARDEGIC [Suspect]
     Indication: AORTIC THROMBOSIS
     Route: 048
     Dates: start: 20100104

REACTIONS (3)
  - ANAEMIA [None]
  - HAEMATEMESIS [None]
  - OESOPHAGITIS [None]
